FAERS Safety Report 9069529 (Version 1)
Quarter: 2013Q1

REPORT INFORMATION
  Report Type: Spontaneous
  Country: US (occurrence: US)
  Receive Date: 20130131
  Receipt Date: 20130131
  Transmission Date: 20140127
  Serious: Yes (Hospitalization, Other)
  Sender: FDA-Public Use
  Company Number: GXBR2013US000541

PATIENT
  Age: 88 Year
  Sex: Female

DRUGS (3)
  1. LORATADINE [Suspect]
     Indication: HYPERSENSITIVITY
     Dosage: 10 MG, PRN
     Route: 048
  2. SOTALOL [Suspect]
     Dosage: UNK MG, UNK
     Dates: start: 20120809
  3. XARELTO [Suspect]
     Dosage: UNK DF, UNK
     Dates: start: 20120813

REACTIONS (7)
  - Atrial fibrillation [Not Recovered/Not Resolved]
  - Heart rate irregular [Not Recovered/Not Resolved]
  - Syncope [Not Recovered/Not Resolved]
  - Head injury [Recovered/Resolved]
  - Injury [Recovered/Resolved]
  - Contusion [Recovered/Resolved]
  - Concussion [None]
